FAERS Safety Report 10055499 (Version 1)
Quarter: 2014Q2

REPORT INFORMATION
  Report Type: Spontaneous
  Country: IT (occurrence: IT)
  Receive Date: 20140403
  Receipt Date: 20140403
  Transmission Date: 20141212
  Serious: Yes (Hospitalization)
  Sender: FDA-Public Use
  Company Number: IT-RANBAXY-2014RR-79510

PATIENT
  Age: 61 Year
  Sex: Female

DRUGS (2)
  1. PARACETAMOL [Suspect]
     Indication: OROPHARYNGEAL PAIN
     Dosage: 1 DOSAGE UNIT COMPLETE
     Route: 048
     Dates: start: 20140314, end: 20140314
  2. MIRTAZAPINE [Concomitant]
     Indication: ANXIETY
     Route: 065

REACTIONS (1)
  - Urticaria [Recovered/Resolved]
